FAERS Safety Report 23702449 (Version 1)
Quarter: 2024Q2

REPORT INFORMATION
  Report Type: Spontaneous
  Country: US (occurrence: None)
  Receive Date: 20240402
  Receipt Date: 20240402
  Transmission Date: 20240716
  Serious: No
  Sender: FDA-Public Use
  Company Number: None

PATIENT
  Age: 69 Year
  Sex: Female

DRUGS (1)
  1. TEZSPIRE [Suspect]
     Active Substance: TEZEPELUMAB-EKKO
     Indication: Asthma
     Dosage: 210MG  EVERY 28 DAYS SUBCUTANEOUSLY?
     Route: 058
     Dates: start: 202402

REACTIONS (2)
  - Transient ischaemic attack [None]
  - Deep vein thrombosis [None]

NARRATIVE: CASE EVENT DATE: 20240301
